FAERS Safety Report 7543566-5 (Version None)
Quarter: 2011Q2

REPORT INFORMATION
  Report Type: 
  Country: None (occurrence: None)
  Receive Date: 20110613
  Receipt Date: 20020716
  Transmission Date: 20111010
  Serious: Yes (Death)
  Sender: FDA-Public Use
  Company Number: PHBS2002LT08486

PATIENT
  Sex: Female
  Weight: 80 kg

DRUGS (4)
  1. LORAZEPAM [Concomitant]
     Dosage: 5 MG/DAY
     Route: 048
  2. CLOZAPINE [Suspect]
     Dosage: 100 MG, UNK
     Route: 048
     Dates: start: 20010519
  3. TRIHEXYPHENIDYL HCL [Concomitant]
     Dosage: 4 MG/DAY
     Route: 048
  4. FLUPENTIXOL [Suspect]
     Dosage: 2 MG/DAY
     Route: 048
     Dates: start: 20001129

REACTIONS (1)
  - CARDIAC FAILURE [None]
